FAERS Safety Report 20328892 (Version 1)
Quarter: 2022Q1

REPORT INFORMATION
  Report Type: Report from Study
  Country: US (occurrence: US)
  Receive Date: 20220112
  Receipt Date: 20220112
  Transmission Date: 20220423
  Serious: Yes (Death, Hospitalization, Other)
  Sender: FDA-Public Use
  Company Number: US-TEVA-2022-US-1997394

PATIENT
  Age: 18 Year
  Sex: Female

DRUGS (3)
  1. PROPRANOLOL [Suspect]
     Active Substance: PROPRANOLOL HYDROCHLORIDE
     Indication: Supraventricular tachycardia
     Route: 065
  2. SOTALOL [Suspect]
     Active Substance: SOTALOL
     Indication: Supraventricular tachycardia
     Dosage: DISCONTINUED AFTER RECEIVING SINGLE DOSE
     Route: 048
  3. DIGOXIN [Suspect]
     Active Substance: DIGOXIN
     Indication: Supraventricular tachycardia
     Route: 065

REACTIONS (3)
  - Torsade de pointes [Fatal]
  - Cardiac arrest [Fatal]
  - Drug ineffective [Unknown]
